FAERS Safety Report 16009496 (Version 7)
Quarter: 2022Q3

REPORT INFORMATION
  Report Type: Report from Study
  Country: US (occurrence: US)
  Receive Date: 20190226
  Receipt Date: 20220809
  Transmission Date: 20221027
  Serious: No
  Sender: FDA-Public Use
  Company Number: PHEH2019US008299

PATIENT
  Sex: Female

DRUGS (1)
  1. OMNITROPE [Suspect]
     Active Substance: SOMATROPIN
     Indication: Product used for unknown indication
     Dosage: 0.4 MG, QD
     Route: 058

REACTIONS (6)
  - Visual impairment [Unknown]
  - Insomnia [Unknown]
  - Injection site pain [Unknown]
  - Product dose omission issue [Unknown]
  - Product storage error [Unknown]
  - Drug ineffective [Unknown]
